FAERS Safety Report 8775265 (Version 1)
Quarter: 2012Q4

REPORT INFORMATION
  Report Type: 
  Country: DE (occurrence: DE)
  Receive Date: 20120910
  Receipt Date: 20120910
  Transmission Date: 20130627
  Serious: Yes (Hospitalization, Other)
  Sender: FDA-Public Use
  Company Number: DE-AMGEN-DEUSP2012056357

PATIENT
  Age: 75 Year
  Sex: Male

DRUGS (1)
  1. XGEVA [Suspect]
     Indication: METASTASES TO BONE
     Dosage: UNK
     Dates: start: 201203, end: 2012

REACTIONS (7)
  - Syncope [Unknown]
  - Convulsion [Unknown]
  - Mental impairment [Unknown]
  - Personality change [Unknown]
  - Electrocardiogram QT prolonged [Unknown]
  - Urosepsis [Unknown]
  - Hypocalcaemia [Unknown]
